FAERS Safety Report 19204296 (Version 3)
Quarter: 2021Q3

REPORT INFORMATION
  Report Type: Spontaneous
  Country: US (occurrence: US)
  Receive Date: 20210503
  Receipt Date: 20210721
  Transmission Date: 20211014
  Serious: Yes (Hospitalization)
  Sender: FDA-Public Use
  Company Number: US-AMGEN INC.-USASP2021064950

PATIENT
  Age: 59 Year
  Sex: Male

DRUGS (3)
  1. AIMOVIG [Suspect]
     Active Substance: ERENUMAB-AOOE
     Dosage: UNK, QMO
     Route: 065
     Dates: start: 20210428
  2. AIMOVIG [Suspect]
     Active Substance: ERENUMAB-AOOE
     Indication: HEADACHE
     Dosage: UNK, QMO
     Route: 065
     Dates: end: 202010
  3. COVID?19 VACCINE [Concomitant]
     Indication: IMMUNISATION
     Route: 065

REACTIONS (1)
  - Chronic obstructive pulmonary disease [Unknown]
